FAERS Safety Report 15056353 (Version 1)
Quarter: 2018Q2

REPORT INFORMATION
  Report Type: Spontaneous
  Country: US (occurrence: US)
  Receive Date: 20180603
  Receipt Date: 20180603
  Transmission Date: 20180711
  Serious: Yes (Other)
  Sender: FDA-Public Use
  Company Number: None

PATIENT
  Age: 65 Year
  Sex: Female
  Weight: 54.9 kg

DRUGS (5)
  1. RALOXIFEN [Suspect]
     Active Substance: RALOXIFENE
     Indication: OSTEOPENIA
     Route: 048
     Dates: start: 20171211, end: 20180409
  2. CALCIUM + D [Concomitant]
     Active Substance: CALCIUM\VITAMIN D
     Dates: start: 20140207
  3. ESTRACE [Concomitant]
     Active Substance: ESTRADIOL
     Dates: start: 20180302
  4. MULTIVITAMIN [Concomitant]
     Active Substance: VITAMINS
     Dates: start: 20100101
  5. YUVAFEM [Concomitant]
     Active Substance: ESTRADIOL HEMIHYDRATE
     Dates: start: 20180201, end: 20180302

REACTIONS (8)
  - Myalgia [None]
  - Thrombosis [None]
  - Arthralgia [None]
  - Injection site swelling [None]
  - Pain in extremity [None]
  - Temporomandibular joint syndrome [None]
  - Bone pain [None]
  - Musculoskeletal stiffness [None]

NARRATIVE: CASE EVENT DATE: 20180423
